FAERS Safety Report 10707041 (Version 1)
Quarter: 2015Q1

REPORT INFORMATION
  Report Type: Spontaneous
  Country: US (occurrence: US)
  Receive Date: 20150113
  Receipt Date: 20150113
  Transmission Date: 20150721
  Serious: No
  Sender: FDA-Public Use
  Company Number: US-ENDO PHARMACEUTICALS INC.-METH20140001

PATIENT
  Age: 62 Year
  Sex: Female

DRUGS (3)
  1. METHYLPREDNISOLONE TABLETS 4MG [Suspect]
     Active Substance: METHYLPREDNISOLONE
     Indication: FACIAL PAIN
  2. METHYLPREDNISOLONE TABLETS 4MG [Suspect]
     Active Substance: METHYLPREDNISOLONE
     Indication: NECK PAIN
  3. METHYLPREDNISOLONE TABLETS 4MG [Suspect]
     Active Substance: METHYLPREDNISOLONE
     Indication: HEADACHE
     Dosage: 6-DAY DOSEPACK
     Route: 048
     Dates: start: 20140113

REACTIONS (2)
  - Drug ineffective [Recovered/Resolved]
  - Incorrect dose administered [Recovered/Resolved]

NARRATIVE: CASE EVENT DATE: 20140114
